FAERS Safety Report 23309242 (Version 6)
Quarter: 2025Q2

REPORT INFORMATION
  Report Type: Spontaneous
  Country: ES (occurrence: ES)
  Receive Date: 20231218
  Receipt Date: 20250630
  Transmission Date: 20250717
  Serious: Yes (Death, Other)
  Sender: MYLAN
  Company Number: ES-ROCHE-3465494

PATIENT
  Age: 64 Year
  Sex: Male

DRUGS (92)
  1. MYCOPHENOLATE MOFETIL [Suspect]
     Active Substance: MYCOPHENOLATE MOFETIL
     Indication: Prophylaxis against transplant rejection
  2. MYCOPHENOLATE MOFETIL [Suspect]
     Active Substance: MYCOPHENOLATE MOFETIL
     Route: 065
  3. MYCOPHENOLATE MOFETIL [Suspect]
     Active Substance: MYCOPHENOLATE MOFETIL
     Route: 065
  4. MYCOPHENOLATE MOFETIL [Suspect]
     Active Substance: MYCOPHENOLATE MOFETIL
  5. TACROLIMUS [Suspect]
     Active Substance: TACROLIMUS
     Indication: Prophylaxis against transplant rejection
  6. TACROLIMUS [Suspect]
     Active Substance: TACROLIMUS
     Route: 065
  7. TACROLIMUS [Suspect]
     Active Substance: TACROLIMUS
     Route: 065
  8. TACROLIMUS [Suspect]
     Active Substance: TACROLIMUS
  9. FLUDARABINE [Suspect]
     Active Substance: FLUDARABINE PHOSPHATE
     Indication: Prophylaxis against transplant rejection
  10. FLUDARABINE [Suspect]
     Active Substance: FLUDARABINE PHOSPHATE
     Indication: Allogenic stem cell transplantation
     Route: 065
  11. FLUDARABINE [Suspect]
     Active Substance: FLUDARABINE PHOSPHATE
     Route: 065
  12. FLUDARABINE [Suspect]
     Active Substance: FLUDARABINE PHOSPHATE
  13. OXALIPLATIN [Suspect]
     Active Substance: OXALIPLATIN
     Indication: Mantle cell lymphoma
  14. OXALIPLATIN [Suspect]
     Active Substance: OXALIPLATIN
     Route: 065
  15. OXALIPLATIN [Suspect]
     Active Substance: OXALIPLATIN
     Route: 065
  16. OXALIPLATIN [Suspect]
     Active Substance: OXALIPLATIN
  17. GEMCITABINE [Suspect]
     Active Substance: GEMCITABINE
     Indication: Mantle cell lymphoma
  18. GEMCITABINE [Suspect]
     Active Substance: GEMCITABINE
     Route: 065
  19. GEMCITABINE [Suspect]
     Active Substance: GEMCITABINE
     Route: 065
  20. GEMCITABINE [Suspect]
     Active Substance: GEMCITABINE
  21. DEXAMETHASONE [Suspect]
     Active Substance: DEXAMETHASONE
     Indication: Mantle cell lymphoma
  22. DEXAMETHASONE [Suspect]
     Active Substance: DEXAMETHASONE
     Route: 065
  23. DEXAMETHASONE [Suspect]
     Active Substance: DEXAMETHASONE
     Route: 065
  24. DEXAMETHASONE [Suspect]
     Active Substance: DEXAMETHASONE
  25. CARBOPLATIN [Suspect]
     Active Substance: CARBOPLATIN
     Indication: Mantle cell lymphoma
  26. CARBOPLATIN [Suspect]
     Active Substance: CARBOPLATIN
     Route: 065
  27. CARBOPLATIN [Suspect]
     Active Substance: CARBOPLATIN
     Route: 065
  28. CARBOPLATIN [Suspect]
     Active Substance: CARBOPLATIN
  29. BUSULFAN [Suspect]
     Active Substance: BUSULFAN
     Indication: Prophylaxis against transplant rejection
  30. BUSULFAN [Suspect]
     Active Substance: BUSULFAN
     Indication: Allogenic stem cell transplantation
     Route: 065
  31. BUSULFAN [Suspect]
     Active Substance: BUSULFAN
     Route: 065
  32. BUSULFAN [Suspect]
     Active Substance: BUSULFAN
  33. RITUXIMAB [Suspect]
     Active Substance: RITUXIMAB
     Indication: Mantle cell lymphoma
  34. RITUXIMAB [Suspect]
     Active Substance: RITUXIMAB
     Route: 065
  35. RITUXIMAB [Suspect]
     Active Substance: RITUXIMAB
     Route: 065
  36. RITUXIMAB [Suspect]
     Active Substance: RITUXIMAB
  37. OBINUTUZUMAB [Suspect]
     Active Substance: OBINUTUZUMAB
     Indication: Mantle cell lymphoma
  38. OBINUTUZUMAB [Suspect]
     Active Substance: OBINUTUZUMAB
     Route: 042
  39. OBINUTUZUMAB [Suspect]
     Active Substance: OBINUTUZUMAB
     Route: 042
  40. OBINUTUZUMAB [Suspect]
     Active Substance: OBINUTUZUMAB
  41. VINCRISTINE [Suspect]
     Active Substance: VINCRISTINE
     Indication: Mantle cell lymphoma
  42. VINCRISTINE [Suspect]
     Active Substance: VINCRISTINE
     Route: 065
  43. VINCRISTINE [Suspect]
     Active Substance: VINCRISTINE
     Route: 065
  44. VINCRISTINE [Suspect]
     Active Substance: VINCRISTINE
  45. IFOSFAMIDE [Suspect]
     Active Substance: IFOSFAMIDE
     Indication: Mantle cell lymphoma
  46. IFOSFAMIDE [Suspect]
     Active Substance: IFOSFAMIDE
     Route: 065
  47. IFOSFAMIDE [Suspect]
     Active Substance: IFOSFAMIDE
     Route: 065
  48. IFOSFAMIDE [Suspect]
     Active Substance: IFOSFAMIDE
  49. CYCLOPHOSPHAMIDE [Suspect]
     Active Substance: CYCLOPHOSPHAMIDE
     Indication: Prophylaxis against transplant rejection
  50. CYCLOPHOSPHAMIDE [Suspect]
     Active Substance: CYCLOPHOSPHAMIDE
     Indication: Mantle cell lymphoma
     Route: 065
  51. CYCLOPHOSPHAMIDE [Suspect]
     Active Substance: CYCLOPHOSPHAMIDE
     Route: 065
  52. CYCLOPHOSPHAMIDE [Suspect]
     Active Substance: CYCLOPHOSPHAMIDE
  53. ADRIAMYCIN [Suspect]
     Active Substance: DOXORUBICIN HYDROCHLORIDE
     Indication: Mantle cell lymphoma
  54. ADRIAMYCIN [Suspect]
     Active Substance: DOXORUBICIN HYDROCHLORIDE
     Route: 065
  55. ADRIAMYCIN [Suspect]
     Active Substance: DOXORUBICIN HYDROCHLORIDE
     Route: 065
  56. ADRIAMYCIN [Suspect]
     Active Substance: DOXORUBICIN HYDROCHLORIDE
  57. THIOTEPA [Suspect]
     Active Substance: THIOTEPA
     Indication: Prophylaxis against transplant rejection
  58. THIOTEPA [Suspect]
     Active Substance: THIOTEPA
     Indication: Allogenic stem cell transplantation
     Route: 065
  59. THIOTEPA [Suspect]
     Active Substance: THIOTEPA
     Route: 065
  60. THIOTEPA [Suspect]
     Active Substance: THIOTEPA
  61. ETOPOSIDE [Suspect]
     Active Substance: ETOPOSIDE
     Indication: Mantle cell lymphoma
  62. ETOPOSIDE [Suspect]
     Active Substance: ETOPOSIDE
     Route: 065
  63. ETOPOSIDE [Suspect]
     Active Substance: ETOPOSIDE
     Route: 065
  64. ETOPOSIDE [Suspect]
     Active Substance: ETOPOSIDE
  65. GLOFITAMAB [Suspect]
     Active Substance: GLOFITAMAB
     Indication: Mantle cell lymphoma
  66. GLOFITAMAB [Suspect]
     Active Substance: GLOFITAMAB
     Route: 042
  67. GLOFITAMAB [Suspect]
     Active Substance: GLOFITAMAB
     Route: 042
  68. GLOFITAMAB [Suspect]
     Active Substance: GLOFITAMAB
  69. IBRUTINIB [Suspect]
     Active Substance: IBRUTINIB
     Indication: Mantle cell lymphoma
  70. IBRUTINIB [Suspect]
     Active Substance: IBRUTINIB
     Route: 065
  71. IBRUTINIB [Suspect]
     Active Substance: IBRUTINIB
     Route: 065
  72. IBRUTINIB [Suspect]
     Active Substance: IBRUTINIB
  73. POLATUZUMAB VEDOTIN [Suspect]
     Active Substance: POLATUZUMAB VEDOTIN
     Indication: Mantle cell lymphoma
  74. POLATUZUMAB VEDOTIN [Suspect]
     Active Substance: POLATUZUMAB VEDOTIN
     Route: 065
  75. POLATUZUMAB VEDOTIN [Suspect]
     Active Substance: POLATUZUMAB VEDOTIN
     Route: 065
  76. POLATUZUMAB VEDOTIN [Suspect]
     Active Substance: POLATUZUMAB VEDOTIN
  77. PENTAMIDINE [Suspect]
     Active Substance: PENTAMIDINE
     Indication: Infection prophylaxis
  78. PENTAMIDINE [Suspect]
     Active Substance: PENTAMIDINE
     Route: 055
  79. PENTAMIDINE [Suspect]
     Active Substance: PENTAMIDINE
     Route: 055
  80. PENTAMIDINE [Suspect]
     Active Substance: PENTAMIDINE
  81. ACYCLOVIR [Suspect]
     Active Substance: ACYCLOVIR
     Indication: Infection prophylaxis
  82. ACYCLOVIR [Suspect]
     Active Substance: ACYCLOVIR
     Route: 065
  83. ACYCLOVIR [Suspect]
     Active Substance: ACYCLOVIR
     Route: 065
  84. ACYCLOVIR [Suspect]
     Active Substance: ACYCLOVIR
  85. POSACONAZOLE [Suspect]
     Active Substance: POSACONAZOLE
     Indication: Infection prophylaxis
  86. POSACONAZOLE [Suspect]
     Active Substance: POSACONAZOLE
     Route: 065
  87. POSACONAZOLE [Suspect]
     Active Substance: POSACONAZOLE
     Route: 065
  88. POSACONAZOLE [Suspect]
     Active Substance: POSACONAZOLE
  89. SULFAMETHOXAZOLE\TRIMETHOPRIM [Suspect]
     Active Substance: SULFAMETHOXAZOLE\TRIMETHOPRIM
     Indication: Infection prophylaxis
  90. SULFAMETHOXAZOLE\TRIMETHOPRIM [Suspect]
     Active Substance: SULFAMETHOXAZOLE\TRIMETHOPRIM
     Route: 065
  91. SULFAMETHOXAZOLE\TRIMETHOPRIM [Suspect]
     Active Substance: SULFAMETHOXAZOLE\TRIMETHOPRIM
     Route: 065
  92. SULFAMETHOXAZOLE\TRIMETHOPRIM [Suspect]
     Active Substance: SULFAMETHOXAZOLE\TRIMETHOPRIM

REACTIONS (6)
  - Graft versus host disease [Fatal]
  - Graft versus host disease in gastrointestinal tract [Fatal]
  - Infection [Fatal]
  - Chronic graft versus host disease [Unknown]
  - Acute graft versus host disease in intestine [Unknown]
  - Intentional product use issue [Unknown]
